FAERS Safety Report 11119264 (Version 2)
Quarter: 2015Q2

REPORT INFORMATION
  Report Type: Spontaneous
  Country: US (occurrence: US)
  Receive Date: 20150518
  Receipt Date: 20150616
  Transmission Date: 20150821
  Serious: No
  Sender: FDA-Public Use
  Company Number: US-PFIZER INC-2015166207

PATIENT
  Age: 8 Year
  Sex: Male
  Weight: 29.25 kg

DRUGS (6)
  1. QUILLIVANT XR [Suspect]
     Active Substance: METHYLPHENIDATE HYDROCHLORIDE
     Dosage: 4 ML, UNK
     Dates: start: 2015, end: 2015
  2. QUILLIVANT XR [Suspect]
     Active Substance: METHYLPHENIDATE HYDROCHLORIDE
     Dosage: 5 ML, UNK
     Dates: start: 2015, end: 2015
  3. QUILLIVANT XR [Suspect]
     Active Substance: METHYLPHENIDATE HYDROCHLORIDE
     Dosage: UNK
  4. QUILLIVANT XR [Suspect]
     Active Substance: METHYLPHENIDATE HYDROCHLORIDE
     Dosage: 8 ML, DAILY
     Dates: start: 2015
  5. ZYRTEC [Concomitant]
     Active Substance: CETIRIZINE HYDROCHLORIDE
     Indication: HYPERSENSITIVITY
     Dosage: UNK (ONE AND HALF TEASPOONS IN LIQUID FORM IN THE EVENING), DAILY
  6. QUILLIVANT XR [Suspect]
     Active Substance: METHYLPHENIDATE HYDROCHLORIDE
     Dosage: 3 ML, UNK
     Dates: start: 20150102, end: 2015

REACTIONS (3)
  - Drug ineffective [Unknown]
  - Energy increased [Unknown]
  - Agitation [Unknown]

NARRATIVE: CASE EVENT DATE: 2015
